FAERS Safety Report 16821783 (Version 1)
Quarter: 2019Q4

REPORT INFORMATION
  Report Type: Spontaneous
  Country: US (occurrence: US)
  Receive Date: 20190917
  Receipt Date: 20190917
  Transmission Date: 20200122
  Serious: Yes (Hospitalization, Disabling, Other)
  Sender: FDA-Public Use
  Company Number: None

PATIENT
  Age: 55 Year
  Sex: Female
  Weight: 76.5 kg

DRUGS (1)
  1. XANAX [Suspect]
     Active Substance: ALPRAZOLAM
     Indication: ANXIETY
     Dosage: ?          QUANTITY:1 TABLET(S);?
     Route: 048
     Dates: start: 20120215, end: 20190215

REACTIONS (30)
  - Hypoaesthesia [None]
  - Panic attack [None]
  - Hypertension [None]
  - Feeling hot [None]
  - Abdominal pain [None]
  - Hypophagia [None]
  - Hyperhidrosis [None]
  - Tremor [None]
  - Skin exfoliation [None]
  - Burning sensation [None]
  - Memory impairment [None]
  - Disturbance in attention [None]
  - Mental disorder [None]
  - Anger [None]
  - Malaise [None]
  - Asthenia [None]
  - Nausea [None]
  - Paraesthesia [None]
  - Fear [None]
  - Suicidal ideation [None]
  - Drug withdrawal syndrome [None]
  - Temperature regulation disorder [None]
  - Weight decreased [None]
  - Economic problem [None]
  - Insomnia [None]
  - Vomiting [None]
  - Cholelithiasis [None]
  - Decreased appetite [None]
  - Partner stress [None]
  - Drug dependence [None]

NARRATIVE: CASE EVENT DATE: 20190215
